FAERS Safety Report 23316902 (Version 1)
Quarter: 2023Q4

REPORT INFORMATION
  Report Type: Spontaneous
  Country: SI (occurrence: SI)
  Receive Date: 20231219
  Receipt Date: 20231219
  Transmission Date: 20240110
  Serious: Yes (Other)
  Sender: FDA-Public Use
  Company Number: SI-BoehringerIngelheim-2023-BI-278042

PATIENT
  Age: 73 Year
  Sex: Male

DRUGS (7)
  1. OFEV [Suspect]
     Active Substance: NINTEDANIB
     Indication: Idiopathic pulmonary fibrosis
     Dates: start: 202105, end: 202306
  2. OLODATEROL HYDROCHLORIDE\TIOTROPIUM BROMIDE MONOHYDRATE [Concomitant]
     Active Substance: OLODATEROL HYDROCHLORIDE\TIOTROPIUM BROMIDE MONOHYDRATE
     Indication: Product used for unknown indication
  3. ESOMEPRAZOLE [Concomitant]
     Active Substance: ESOMEPRAZOLE
     Indication: Product used for unknown indication
  4. BENSERAZIDE HYDROCHLORIDE\LEVODOPA [Concomitant]
     Active Substance: BENSERAZIDE HYDROCHLORIDE\LEVODOPA
     Indication: Product used for unknown indication
  5. DICLOFENAC SODIUM [Concomitant]
     Active Substance: DICLOFENAC\DICLOFENAC SODIUM
     Indication: Product used for unknown indication
     Dates: end: 202306
  6. ACETAMINOPHEN [Concomitant]
     Active Substance: ACETAMINOPHEN
     Indication: Product used for unknown indication
  7. METAMIZOLE [Concomitant]
     Active Substance: METAMIZOLE
     Indication: Product used for unknown indication

REACTIONS (10)
  - Gastrointestinal haemorrhage [Unknown]
  - Haemoglobin decreased [Recovering/Resolving]
  - Dyspepsia [Recovered/Resolved]
  - Diarrhoea [Unknown]
  - Colitis [Unknown]
  - Occult blood positive [Unknown]
  - Anaemia [Recovering/Resolving]
  - Mesenteric artery stenosis [Unknown]
  - Haematochezia [Unknown]
  - Enteritis [Unknown]

NARRATIVE: CASE EVENT DATE: 20230601
